FAERS Safety Report 14949725 (Version 2)
Quarter: 2018Q2

REPORT INFORMATION
  Report Type: Spontaneous
  Country: GR (occurrence: GR)
  Receive Date: 20180529
  Receipt Date: 20180608
  Transmission Date: 20180711
  Serious: Yes (Life-Threatening)
  Sender: FDA-Public Use
  Company Number: GR-BAXTER-2018BAX015140

PATIENT
  Age: 5 Day
  Sex: Female
  Weight: 1.49 kg

DRUGS (17)
  1. WATER FOR INJECTION/BAXTER (VIAFLO) SOLVENT FOR PARENTERAL USE 100%W/V [Suspect]
     Active Substance: WATER
     Indication: PRODUCT USED FOR UNKNOWN INDICATION
     Dosage: WATER FOR INJECTION 1000ML
     Route: 042
     Dates: start: 20180408, end: 20180410
  2. PEDITRACE [Suspect]
     Active Substance: CUPRIC CHLORIDE\MANGANESE CHLORIDE\POTASSIUM IODIDE\SODIUM FLUORIDE\SODIUM SELENITE\ZINC CHLORIDE
     Indication: PRODUCT USED FOR UNKNOWN INDICATION
     Dosage: PEDITRACE C/S.SOL.IN 10 ML
     Route: 042
     Dates: start: 20180408, end: 20180410
  3. MAGNESIUM SULFATE. [Suspect]
     Active Substance: MAGNESIUM SULFATE
     Indication: PRODUCT USED FOR UNKNOWN INDICATION
     Route: 042
     Dates: start: 20180408, end: 20180410
  4. SOLUVIT N [Suspect]
     Active Substance: VITAMINS
     Indication: PRODUCT USED FOR UNKNOWN INDICATION
     Route: 042
     Dates: start: 20180408, end: 20180410
  5. CLAFORAN (IV) [Concomitant]
     Indication: PRODUCT USED FOR UNKNOWN INDICATION
     Route: 042
     Dates: start: 20180404, end: 20180409
  6. POTASSIUM CHLORIDE. [Suspect]
     Active Substance: POTASSIUM CHLORIDE
     Indication: PRODUCT USED FOR UNKNOWN INDICATION
     Dosage: 10%/10ML
     Route: 042
     Dates: start: 20180408, end: 20180410
  7. AMPICILLIN [Concomitant]
     Active Substance: AMPICILLIN
     Indication: PRODUCT USED FOR UNKNOWN INDICATION
     Dosage: AMPICILLIN - SOLUTION FOR INJECTION/INFUSION
     Route: 042
     Dates: start: 20180404, end: 20180409
  8. DEXTROSE. [Suspect]
     Active Substance: DEXTROSE
     Indication: PRODUCT USED FOR UNKNOWN INDICATION
     Route: 042
     Dates: start: 20180408, end: 20180410
  9. VITALIPID/INFANTS [Suspect]
     Active Substance: ERGOCALCIFEROL\PHYTONADIONE\TOCOPHEROL\VITAMIN A PALMITATE
     Indication: PRODUCT USED FOR UNKNOWN INDICATION
     Dosage: VITALIPID/ INFANTS INJ EM. INF
     Route: 042
     Dates: start: 20180408, end: 20180410
  10. INTRALIPID [Suspect]
     Active Substance: EGG PHOSPHOLIPIDS\GLYCERIN\SOYBEAN OIL
     Indication: PRODUCT USED FOR UNKNOWN INDICATION
     Dosage: INTRALIPID INJ EM INF 20%
     Route: 042
     Dates: start: 20180408, end: 20180410
  11. GLYCOPHOS [Suspect]
     Active Substance: SODIUM GLYCEROPHOSPHATE ANHYDROUS
     Indication: PRODUCT USED FOR UNKNOWN INDICATION
     Dosage: GLYCOPHOS C/S. SOL.IN 20ML
     Route: 042
     Dates: start: 20180408, end: 20180410
  12. WATER FOR INJECTION [Suspect]
     Active Substance: WATER
     Indication: PRODUCT USED FOR UNKNOWN INDICATION
     Route: 042
     Dates: start: 20180408, end: 20180410
  13. VAMIN INFANT [Suspect]
     Active Substance: AMINO ACIDS
     Route: 042
     Dates: start: 20180408, end: 20180410
  14. SODIUM CHLORIDE. [Suspect]
     Active Substance: SODIUM CHLORIDE
     Indication: PRODUCT USED FOR UNKNOWN INDICATION
     Route: 042
     Dates: start: 20180408, end: 20180410
  15. VAMIN INFANT [Suspect]
     Active Substance: AMINO ACIDS
     Indication: PRODUCT USED FOR UNKNOWN INDICATION
     Route: 042
     Dates: start: 20180408, end: 20180410
  16. CALCIUM GLUCONATE. [Suspect]
     Active Substance: CALCIUM GLUCONATE
     Indication: PRODUCT USED FOR UNKNOWN INDICATION
     Route: 042
     Dates: start: 20180408, end: 20180410
  17. GARAMYCIN [Concomitant]
     Active Substance: GENTAMICIN SULFATE
     Indication: PRODUCT USED FOR UNKNOWN INDICATION
     Route: 042
     Dates: start: 20180404, end: 20180423

REACTIONS (2)
  - Product preparation error [Recovered/Resolved]
  - Neonatal infection [Recovered/Resolved]

NARRATIVE: CASE EVENT DATE: 20180409
